FAERS Safety Report 7530408-7 (Version None)
Quarter: 2011Q2

REPORT INFORMATION
  Report Type: 
  Country: None (occurrence: None)
  Receive Date: 20110607
  Receipt Date: 20110526
  Transmission Date: 20111010
  Serious: Yes (Hospitalization)
  Sender: FDA-Public Use
  Company Number: FR-ELI_LILLY_AND_COMPANY-FR201103006762

PATIENT
  Age: 79 Year
  Sex: Female
  Weight: 65 kg

DRUGS (3)
  1. DEPAKENE [Concomitant]
     Route: 048
  2. FORTEO [Suspect]
     Indication: OSTEOPOROSIS
     Dosage: 20 UG, QD
     Route: 058
     Dates: start: 20101020
  3. ALEPSAL [Concomitant]
     Indication: EPILEPSY
     Dosage: 1 DF, QD
     Route: 048

REACTIONS (2)
  - FALL [None]
  - FEMUR FRACTURE [None]
